FAERS Safety Report 6491186-6 (Version None)
Quarter: 2009Q4

REPORT INFORMATION
  Report Type: 
  Country: None (occurrence: None)
  Receive Date: 20091211
  Receipt Date: 20091208
  Transmission Date: 20100525
  Serious: Yes (Life-Threatening, Disabling)
  Sender: FDA-Public Use
  Company Number: ZA-ABBOTT-09P-143-0613089-01

PATIENT
  Sex: Female
  Weight: 72.6 kg

DRUGS (2)
  1. KALETRA [Suspect]
     Indication: HIV INFECTION
     Route: 048
     Dates: start: 20060508, end: 20060622
  2. TRUVADA [Concomitant]
     Indication: HIV INFECTION
     Route: 048
     Dates: start: 20060508, end: 20060622

REACTIONS (2)
  - HEPATITIS [None]
  - TRANSAMINASES INCREASED [None]
